FAERS Safety Report 10120777 (Version 1)
Quarter: 2014Q2

REPORT INFORMATION
  Report Type: Spontaneous
  Country: CN (occurrence: CN)
  Receive Date: 20140425
  Receipt Date: 20140425
  Transmission Date: 20141212
  Serious: Yes (Other)
  Sender: FDA-Public Use
  Company Number: CN-BRISTOL-MYERS SQUIBB COMPANY-20650990

PATIENT
  Age: 70 Year
  Sex: Male

DRUGS (2)
  1. GLUCOPHAGE [Suspect]
     Indication: TYPE 2 DIABETES MELLITUS
     Route: 048
     Dates: end: 20140414
  2. INSULIN [Suspect]
     Dosage: 1 DF: LONG ACTING INJECTION UNIT NOS

REACTIONS (1)
  - Gastric haemorrhage [Unknown]
